FAERS Safety Report 5911023-5 (Version None)
Quarter: 2008Q4

REPORT INFORMATION
  Report Type: 
  Country: None (occurrence: None)
  Receive Date: 20081007
  Receipt Date: 20080929
  Transmission Date: 20090506
  Serious: Yes (Hospitalization, Other)
  Sender: FDA-Public Use
  Company Number: PR-SANOFI-SYNTHELABO-A01200811951

PATIENT
  Sex: Male

DRUGS (9)
  1. ETOPOSIDE [Concomitant]
     Dosage: UNK
  2. NOVANTRONE [Concomitant]
     Dosage: UNK
  3. IFOSFAMIDE [Concomitant]
     Dosage: UNK
  4. MESNA [Concomitant]
     Dosage: UNK
  5. ANTIANXIETY AGENT NOS [Concomitant]
     Dosage: UNK
  6. MABTHERA [Suspect]
     Indication: LYMPHOMA
     Route: 042
     Dates: start: 20080527, end: 20080527
  7. NEULASTA [Suspect]
     Indication: CHEMOTHERAPY
     Route: 058
     Dates: start: 20080430, end: 20080529
  8. GEMCITABINE [Suspect]
     Indication: LYMPHOMA
     Route: 041
     Dates: start: 20080528, end: 20080528
  9. OXALIPLATIN [Suspect]
     Indication: LYMPHOMA
     Route: 041
     Dates: start: 20080528, end: 20080528

REACTIONS (3)
  - CELLULITIS [None]
  - DISEASE PROGRESSION [None]
  - FEBRILE NEUTROPENIA [None]
